FAERS Safety Report 19355453 (Version 3)
Quarter: 2022Q1

REPORT INFORMATION
  Report Type: Report from Study
  Country: US (occurrence: US)
  Receive Date: 20210601
  Receipt Date: 20220113
  Transmission Date: 20220423
  Serious: Yes (Other)
  Sender: FDA-Public Use
  Company Number: US-BOEHRINGERINGELHEIM-2021-BI-099420

PATIENT
  Age: 70 Year
  Sex: Male

DRUGS (3)
  1. OFEV [Suspect]
     Active Substance: NINTEDANIB
     Indication: Idiopathic pulmonary fibrosis
     Route: 048
     Dates: start: 20210408, end: 20210410
  2. OFEV [Suspect]
     Active Substance: NINTEDANIB
     Route: 048
     Dates: start: 20210415, end: 20210416
  3. OFEV [Suspect]
     Active Substance: NINTEDANIB
     Dates: start: 20211010

REACTIONS (7)
  - Respiratory arrest [Recovered/Resolved]
  - Dysphonia [Unknown]
  - Diarrhoea [Unknown]
  - Faeces soft [Unknown]
  - Adverse reaction [Recovering/Resolving]
  - Respiratory rate increased [Recovered/Resolved]
  - Oxygen saturation abnormal [Recovered/Resolved]

NARRATIVE: CASE EVENT DATE: 20210415
